FAERS Safety Report 7540651-9 (Version None)
Quarter: 2011Q2

REPORT INFORMATION
  Report Type: 
  Country: None (occurrence: None)
  Receive Date: 20110610
  Receipt Date: 20110608
  Transmission Date: 20111010
  Serious: Yes (Death, Other)
  Sender: FDA-Public Use
  Company Number: PHHY2011GB05571

PATIENT
  Age: 86 Year
  Sex: Male
  Weight: 61 kg

DRUGS (16)
  1. WARFARIN SODIUM [Suspect]
     Indication: ATRIAL FIBRILLATION
     Route: 048
     Dates: start: 19920101
  2. FERROUS SULFATE TAB [Concomitant]
     Dosage: 200 MG, QD
     Route: 048
  3. OMEPRAZOLE [Concomitant]
     Route: 048
  4. TAMSULOSIN HYDROCHLORIDE [Concomitant]
     Dosage: 400 UG, QD
     Route: 048
  5. VENLAFAXINE [Concomitant]
     Dosage: 75 MG, TID
     Route: 048
  6. SENNA-MINT WAF [Concomitant]
     Dosage: 7.5 MG, UNK
  7. ALENDRONIC ACID [Concomitant]
     Dosage: 70 MG, QW
     Route: 048
  8. INFLUENZA VIRUS VACCINE [Concomitant]
  9. CALCIUM W/COLECALCIFEROL [Concomitant]
     Route: 048
  10. FINASTERIDE [Concomitant]
     Dosage: 5 MG, QD
  11. LACTULOSE [Concomitant]
     Dosage: 10 ML, UNK
     Route: 048
  12. DIGOXIN [Concomitant]
     Dosage: 62.5 UG, UNK
     Route: 048
  13. FUROSEMIDE [Concomitant]
     Dosage: 40 MG, UNK
     Route: 048
  14. SIMVASTATIN [Concomitant]
     Dosage: 40 MG, UNK
     Route: 048
  15. OLANZAPINE [Concomitant]
     Dosage: 2.5 MG, UNK
     Route: 048
  16. ACETAMINOPHEN [Concomitant]
     Dosage: 500 MG, PRN
     Route: 048

REACTIONS (2)
  - CEREBRAL HAEMORRHAGE [None]
  - FALL [None]
